FAERS Safety Report 10371166 (Version 1)
Quarter: 2014Q3

REPORT INFORMATION
  Report Type: Spontaneous
  Country: US (occurrence: None)
  Receive Date: 20140806
  Receipt Date: 20140806
  Transmission Date: 20150326
  Serious: Yes (Other)
  Sender: FDA-Public Use
  Company Number: 1713747-2014-999109

PATIENT
  Age: 60 Year
  Sex: Female

DRUGS (2)
  1. DELFLEX [Suspect]
     Active Substance: CALCIUM CHLORIDE\DEXTROSE MONOHYDRATE\MAGNESIUM CHLORIDE\SODIUM CHLORIDE\SODIUM LACTATE
     Indication: RENAL FAILURE CHRONIC
     Route: 033
  2. LIBERTY DIALYSIS TUBING AND CYCLER [Concomitant]

REACTIONS (5)
  - Abdominal pain [None]
  - Pyrexia [None]
  - Bowel movement irregularity [None]
  - Peritoneal cloudy effluent [None]
  - Peritonitis bacterial [None]

NARRATIVE: CASE EVENT DATE: 20140706
